FAERS Safety Report 15837872 (Version 1)
Quarter: 2019Q1

REPORT INFORMATION
  Report Type: Spontaneous
  Country: ES (occurrence: ES)
  Receive Date: 20190117
  Receipt Date: 20190117
  Transmission Date: 20190417
  Serious: Yes (Hospitalization)
  Sender: FDA-Public Use
  Company Number: ES-SAKK-2019SA009661AA

PATIENT
  Age: 83 Year
  Sex: Male
  Weight: 70 kg

DRUGS (6)
  1. CEFTRIAXONA [CEFTRIAXONE] [Concomitant]
     Dosage: 2 G, QD
     Route: 042
  2. PIPERACILLIN/TAZOBACTAM [Suspect]
     Active Substance: PIPERACILLIN SODIUM\TAZOBACTAM SODIUM
     Dosage: 2 G, QD
     Route: 042
     Dates: start: 20181125, end: 20181204
  3. VANCOMICINA [VANCOMYCIN] [Suspect]
     Active Substance: VANCOMYCIN
     Dosage: 125 MG, Q6H
     Route: 048
     Dates: start: 20181129, end: 20181207
  4. LINEZOLID. [Suspect]
     Active Substance: LINEZOLID
     Dosage: 600 MG, Q12H
     Route: 042
     Dates: start: 20181129, end: 20181204
  5. CAPECITABINE. [Suspect]
     Active Substance: CAPECITABINE
     Indication: RECTAL ADENOCARCINOMA
     Dosage: 1000 MG CADA 12 HORAS
     Route: 048
     Dates: start: 20181024, end: 20181116
  6. CLEXANE [Suspect]
     Active Substance: ENOXAPARIN SODIUM
     Indication: PULMONARY EMBOLISM
     Dosage: 40 MG, Q12H
     Route: 058
     Dates: start: 20181126, end: 20181208

REACTIONS (1)
  - Stevens-Johnson syndrome [Recovering/Resolving]

NARRATIVE: CASE EVENT DATE: 20181201
